FAERS Safety Report 8783537 (Version 1)
Quarter: 2012Q4

REPORT INFORMATION
  Report Type: Report from Study
  Country: US (occurrence: US)
  Receive Date: 20120913
  Receipt Date: 20120913
  Transmission Date: 20130627
  Serious: Yes (Hospitalization)
  Sender: FDA-Public Use
  Company Number: US-VERTEX PHARMACEUTICAL INC.-AE-2012-008584

PATIENT
  Sex: Female

DRUGS (6)
  1. INCIVEK [Suspect]
     Indication: HEPATITIS C
     Route: 048
     Dates: start: 201202
  2. PEGASYS [Concomitant]
     Indication: HEPATITIS C
     Route: 058
     Dates: start: 201202
  3. RIBAPAK [Concomitant]
     Indication: HEPATITIS C
     Dates: start: 201202
  4. CENTRUM SILVER [Concomitant]
     Route: 048
  5. PAXIL [Concomitant]
     Route: 048
  6. FLUTICASONE PROP [Concomitant]

REACTIONS (1)
  - Anaemia [Unknown]
